FAERS Safety Report 25407569 (Version 1)
Quarter: 2025Q2

REPORT INFORMATION
  Report Type: Spontaneous
  Country: US (occurrence: None)
  Receive Date: 20250605
  Receipt Date: 20250605
  Transmission Date: 20250716
  Serious: Yes (Life-Threatening, Other)
  Sender: FDA-CTU
  Company Number: None

PATIENT
  Age: 66 Year
  Sex: Female

DRUGS (1)
  1. CAPECITABINE [Suspect]
     Active Substance: CAPECITABINE
     Dosage: FREQUENCY : TWICE A DAY;?
     Route: 048

REACTIONS (9)
  - Diarrhoea [None]
  - Pain [None]
  - Scleral discolouration [None]
  - Affective disorder [None]
  - Suicidal ideation [None]
  - Violence-related symptom [None]
  - Anxiety [None]
  - Depression [None]
  - Agitation [None]

NARRATIVE: CASE EVENT DATE: 20250603
